FAERS Safety Report 17704530 (Version 1)
Quarter: 2020Q2

REPORT INFORMATION
  Report Type: Spontaneous
  Country: FR (occurrence: FR)
  Receive Date: 20200424
  Receipt Date: 20200424
  Transmission Date: 20200714
  Serious: Yes (Other)
  Sender: FDA-Public Use
  Company Number: US-BRAINTREE LABORATORIES-180579-4

PATIENT
  Age: 23 Year
  Sex: Female

DRUGS (1)
  1. EZICLEN [Suspect]
     Active Substance: MAGNESIUM SULFATE\POTASSIUM SULFATE\SODIUM SULFATE
     Route: 065
     Dates: start: 20180927, end: 20180927

REACTIONS (26)
  - Circulatory collapse [None]
  - Multiple sclerosis [None]
  - Headache [None]
  - Long QT syndrome [None]
  - Respiratory distress [None]
  - Drug intolerance [None]
  - Hypoaesthesia [None]
  - Pharyngeal swelling [None]
  - Nightmare [None]
  - Fatigue [None]
  - Blood glucose decreased [None]
  - Blood potassium abnormal [None]
  - Asthenia [None]
  - Multiple sclerosis relapse [None]
  - Hypotension [None]
  - Thyroid mass [None]
  - Abnormal dreams [None]
  - Bronchitis [None]
  - Impaired healing [None]
  - Peroneal nerve palsy [None]
  - Influenza [None]
  - Limb discomfort [None]
  - Oropharyngeal pain [None]
  - Blood electrolytes abnormal [None]
  - Nasopharyngitis [None]
  - Therapeutic product effect decreased [None]
